FAERS Safety Report 19513372 (Version 1)
Quarter: 2021Q3

REPORT INFORMATION
  Report Type: Report from Study
  Country: CA (occurrence: CA)
  Receive Date: 20210709
  Receipt Date: 20210709
  Transmission Date: 20211014
  Serious: Yes (Other)
  Sender: FDA-Public Use
  Company Number: CA-TAKEDA-2021TUS042545

PATIENT
  Age: 62 Year
  Sex: Female

DRUGS (2)
  1. VEDOLIZUMAB [Suspect]
     Active Substance: VEDOLIZUMAB
     Indication: CROHN^S DISEASE
     Dosage: 300 MILLIGRAM
     Route: 042
     Dates: start: 20210629
  2. CORTIMENT [Concomitant]
     Dosage: 9 MILLIGRAM

REACTIONS (3)
  - Vascular access site occlusion [Unknown]
  - Poor venous access [Unknown]
  - Burning sensation [Unknown]

NARRATIVE: CASE EVENT DATE: 20210706
